FAERS Safety Report 5045198-X (Version None)
Quarter: 2006Q3

REPORT INFORMATION
  Report Type: 
  Country: None (occurrence: None)
  Receive Date: 20060707
  Receipt Date: 20060706
  Transmission Date: 20061208
  Serious: Yes (Hospitalization)
  Sender: FDA-Public Use
  Company Number: US-GLAXOSMITHKLINE-A0611334A

PATIENT
  Age: 2 Year
  Sex: Male

DRUGS (1)
  1. WELLBUTRIN [Suspect]
     Dosage: 5TAB SINGLE DOSE
     Route: 048

REACTIONS (2)
  - ACCIDENTAL OVERDOSE [None]
  - HEART RATE IRREGULAR [None]
